FAERS Safety Report 22218134 (Version 1)
Quarter: 2023Q2

REPORT INFORMATION
  Report Type: Spontaneous
  Country: US (occurrence: US)
  Receive Date: 20230417
  Receipt Date: 20230417
  Transmission Date: 20230722
  Serious: Yes (Hospitalization, Other)
  Sender: FDA-Public Use
  Company Number: US-PFIZER INC-202300148789

PATIENT
  Age: 72 Year
  Sex: Female

DRUGS (2)
  1. TOFACITINIB [Suspect]
     Active Substance: TOFACITINIB
     Indication: Colitis ulcerative
     Dosage: UNK
     Dates: start: 202202, end: 202203
  2. TOFACITINIB [Suspect]
     Active Substance: TOFACITINIB
     Dosage: UNK
     Dates: start: 202205

REACTIONS (2)
  - Varicella zoster virus infection [Unknown]
  - Vascular encephalopathy [Unknown]

NARRATIVE: CASE EVENT DATE: 20220301
